FAERS Safety Report 26108965 (Version 1)
Quarter: 2025Q4

REPORT INFORMATION
  Report Type: Spontaneous
  Country: US (occurrence: None)
  Receive Date: 20251129
  Receipt Date: 20251129
  Transmission Date: 20260118
  Serious: Yes (unspecified)
  Sender: FDA-CTU
  Company Number: None

PATIENT
  Age: 30 Year
  Sex: Male

DRUGS (1)
  1. COSMETICS [Suspect]
     Active Substance: COSMETICS
     Route: 061
     Dates: start: 20251007, end: 20251125

REACTIONS (7)
  - Application site burn [None]
  - Application site pruritus [None]
  - Application site discolouration [None]
  - Application site erythema [None]
  - Application site exfoliation [None]
  - Application site induration [None]
  - Application site irritation [None]

NARRATIVE: CASE EVENT DATE: 20251008
